FAERS Safety Report 10006428 (Version 1)
Quarter: 2014Q1

REPORT INFORMATION
  Report Type: Spontaneous
  Country: US (occurrence: US)
  Receive Date: 20140313
  Receipt Date: 20140313
  Transmission Date: 20141002
  Serious: Yes (Death, Other)
  Sender: FDA-Public Use
  Company Number: US-UPSHER-SMITH LABORATORIES, INC.-14000496

PATIENT
  Age: 35 Year
  Sex: Female
  Weight: 97 kg

DRUGS (4)
  1. CHLORPROMAZINE HYDROCHLORIDE [Suspect]
     Indication: PRODUCT USED FOR UNKNOWN INDICATION
     Dosage: UNK, UNK
  2. FENTANYL [Suspect]
     Indication: PRODUCT USED FOR UNKNOWN INDICATION
  3. DIPHENHYDRAMINE HCL [Suspect]
  4. ALPRAZOLAM [Suspect]

REACTIONS (8)
  - Drug abuse [Fatal]
  - Toxicity to various agents [Fatal]
  - Pulmonary congestion [Unknown]
  - Pulmonary oedema [Unknown]
  - Cardiomegaly [Unknown]
  - Arteriosclerosis coronary artery [Unknown]
  - Hepatomegaly [Unknown]
  - Hepatic steatosis [Unknown]
